FAERS Safety Report 21788232 (Version 1)
Quarter: 2022Q4

REPORT INFORMATION
  Report Type: Other
  Country: US (occurrence: None)
  Receive Date: 20221228
  Receipt Date: 20221228
  Transmission Date: 20230113
  Serious: Yes (Other)
  Sender: FDA-Public Use
  Company Number: US-ROCHE-3249943

PATIENT

DRUGS (5)
  1. TOCILIZUMAB [Suspect]
     Active Substance: TOCILIZUMAB
     Indication: COVID-19
     Route: 065
  2. REMDESIVIR [Suspect]
     Active Substance: REMDESIVIR
     Indication: COVID-19
     Dosage: REMDESIVIR TREATMENT COURSE WAS 10 DAYS AND COMPRISED A LOADING DOSE OF 200 MG INTRAVENOUSLY (DAY 1)
     Route: 042
  3. HYDROXYCHLOROQUINE [Suspect]
     Active Substance: HYDROXYCHLOROQUINE
     Indication: COVID-19
     Route: 065
  4. AZITHROMYCIN [Suspect]
     Active Substance: AZITHROMYCIN
     Indication: COVID-19
     Route: 065
  5. LOPINAVIR\RITONAVIR [Suspect]
     Active Substance: LOPINAVIR\RITONAVIR
     Indication: COVID-19
     Route: 065

REACTIONS (29)
  - Hypoxia [Unknown]
  - Acute respiratory distress syndrome [Unknown]
  - Cardiac arrest [Unknown]
  - Dysphagia [Unknown]
  - Haemoperitoneum [Unknown]
  - Pneumonia [Unknown]
  - Activated partial thromboplastin time prolonged [Unknown]
  - White blood cell count increased [Unknown]
  - Brain injury [Unknown]
  - Delirium [Unknown]
  - Vena cava thrombosis [Unknown]
  - Abortion spontaneous [Unknown]
  - Staphylococcal bacteraemia [Unknown]
  - Endocarditis [Unknown]
  - Arthritis bacterial [Unknown]
  - Deep vein thrombosis [Unknown]
  - Anaemia [Unknown]
  - Constipation [Unknown]
  - Hypertension [Unknown]
  - Nausea [Unknown]
  - Pleural effusion [Unknown]
  - Alanine aminotransferase increased [Unknown]
  - Aspartate aminotransferase increased [Unknown]
  - Blood creatinine increased [Unknown]
  - Haemoptysis [Unknown]
  - Premature delivery [Unknown]
  - Gestational diabetes [Unknown]
  - Maternal exposure during pregnancy [Unknown]
  - Off label use [Unknown]
